FAERS Safety Report 9623857 (Version 1)
Quarter: 2013Q4

REPORT INFORMATION
  Report Type: Spontaneous
  Country: CA (occurrence: CA)
  Receive Date: 20131015
  Receipt Date: 20131015
  Transmission Date: 20140711
  Serious: Yes (Other)
  Sender: FDA-Public Use
  Company Number: CA-BAYER-2013-121808

PATIENT
  Age: 43 Year
  Sex: Female

DRUGS (1)
  1. YASMIN 28 [Suspect]

REACTIONS (1)
  - Abdominal adhesions [None]
